FAERS Safety Report 7830823-8 (Version None)
Quarter: 2011Q4

REPORT INFORMATION
  Report Type: 
  Country: None (occurrence: None)
  Receive Date: 20111021
  Receipt Date: 20111013
  Transmission Date: 20120403
  Serious: Yes (Other)
  Sender: FDA-Public Use
  Company Number: FR-VIIV HEALTHCARE LIMITED-B0755063A

PATIENT
  Sex: Male
  Weight: 83 kg

DRUGS (5)
  1. BISOPROLOL FUMARATE [Concomitant]
     Route: 065
  2. EXFORGE [Concomitant]
     Route: 065
  3. ABACAVIR SULFATE AND LAMIVUDINE [Suspect]
     Indication: HIV INFECTION
     Dosage: 1UNIT PER DAY
     Route: 048
     Dates: start: 20110222, end: 20110412
  4. ISENTRESS [Suspect]
     Indication: HIV INFECTION
     Dosage: 400MG TWICE PER DAY
     Route: 048
     Dates: start: 20110222, end: 20110412
  5. ZOLPIDEM [Concomitant]
     Route: 065

REACTIONS (14)
  - PRURITUS GENERALISED [None]
  - EYE OEDEMA [None]
  - PHARYNGITIS [None]
  - HYPERSENSITIVITY [None]
  - DRUG RASH WITH EOSINOPHILIA AND SYSTEMIC SYMPTOMS [None]
  - RASH MACULO-PAPULAR [None]
  - RASH FOLLICULAR [None]
  - APHTHOUS STOMATITIS [None]
  - FACE OEDEMA [None]
  - LIP OEDEMA [None]
  - MOUTH ULCERATION [None]
  - EOSINOPHILIA [None]
  - ENANTHEMA [None]
  - RASH PUSTULAR [None]
